FAERS Safety Report 7207577-1 (Version None)
Quarter: 2011Q1

REPORT INFORMATION
  Report Type: 
  Country: None (occurrence: None)
  Receive Date: 20110103
  Receipt Date: 20101201
  Transmission Date: 20110831
  Serious: Yes (Other)
  Sender: FDA-Public Use
  Company Number: SK-PFIZER INC-2010161283

PATIENT
  Sex: Male

DRUGS (7)
  1. PREDUCTAL [Concomitant]
     Dosage: UNK
  2. DORSIFLEX [Concomitant]
  3. CADUET [Suspect]
     Dosage: UNK
     Route: 048
  4. ANOPYRIN [Concomitant]
     Dosage: 100 MG, UNK
  5. PRESTARIUM [Concomitant]
     Dosage: UNK
  6. ACECLOFENAC [Concomitant]
  7. BISOPROLOL [Concomitant]
     Dosage: 5 MG, 1X/DAY

REACTIONS (4)
  - MYOGLOBIN BLOOD INCREASED [None]
  - MYALGIA [None]
  - BLOOD CREATINE PHOSPHOKINASE INCREASED [None]
  - MUSCULAR WEAKNESS [None]
